FAERS Safety Report 8765151 (Version 1)
Quarter: 2012Q4

REPORT INFORMATION
  Report Type: 
  Country: US (occurrence: US)
  Receive Date: 20120903
  Receipt Date: 20120903
  Transmission Date: 20130627
  Serious: No
  Sender: FDA-Public Use
  Company Number: US-009507513-1208USA011719

PATIENT

DRUGS (4)
  1. FOSAMAX [Suspect]
     Indication: OSTEOPOROSIS PROPHYLAXIS
     Dosage: 70 mg, qw
     Route: 048
     Dates: start: 1994, end: 20120615
  2. OMEPRAZOLE [Concomitant]
  3. K-DUR [Concomitant]
     Route: 048
  4. NASONEX [Concomitant]

REACTIONS (2)
  - Foot deformity [Recovering/Resolving]
  - Muscle spasms [Recovering/Resolving]
